FAERS Safety Report 9576813 (Version 1)
Quarter: 2013Q4

REPORT INFORMATION
  Report Type: Spontaneous
  Country: US (occurrence: US)
  Receive Date: 20131001
  Receipt Date: 20131001
  Transmission Date: 20140711
  Serious: No
  Sender: FDA-Public Use
  Company Number: US-AMGEN-USASP2013004580

PATIENT
  Sex: Female

DRUGS (3)
  1. ENBREL [Suspect]
     Indication: RHEUMATOID ARTHRITIS
     Dosage: 50 MG, UNK AS DIRECTED BY THE PHYSICIAN
  2. IBUPROFEN [Concomitant]
     Dosage: 200 MG, UNK
  3. PROMETHAZINE [Concomitant]
     Dosage: 12.5 MG, UNK

REACTIONS (2)
  - Cough [Unknown]
  - Pyrexia [Unknown]
